FAERS Safety Report 7717242-X (Version None)
Quarter: 2011Q3

REPORT INFORMATION
  Report Type: 
  Country: None (occurrence: None)
  Receive Date: 20110818
  Receipt Date: 20110630
  Transmission Date: 20111222
  Serious: No
  Sender: FDA-Public Use
  Company Number: 1000021907

PATIENT
  Age: 40 Year
  Sex: Male

DRUGS (1)
  1. VIIBRYD [Suspect]
     Indication: DEPRESSION
     Dosage: 10 MG (10 MG, 1 IN 1 D), ORAL
     Route: 048
     Dates: start: 20110628, end: 20110630

REACTIONS (9)
  - FLUSHING [None]
  - DYSURIA [None]
  - IRRITABILITY [None]
  - INSOMNIA [None]
  - BLADDER DISCOMFORT [None]
  - ANXIETY [None]
  - DIARRHOEA [None]
  - VASODILATION PROCEDURE [None]
  - PENIS DISORDER [None]
